FAERS Safety Report 9063974 (Version 1)
Quarter: 2013Q1

REPORT INFORMATION
  Report Type: Report from Study
  Country: US (occurrence: US)
  Receive Date: 20130131
  Receipt Date: 20130131
  Transmission Date: 20140127
  Serious: No
  Sender: FDA-Public Use
  Company Number: US-ABBOTT-12P-163-1003781-00

PATIENT
  Age: 67 Year
  Sex: Male

DRUGS (4)
  1. HUMIRA [Suspect]
     Indication: CROHN^S DISEASE
     Dates: start: 20120914
  2. PRILOSEC [Concomitant]
     Indication: CROHN^S DISEASE
     Dosage: 40MG DAILY
  3. PURINETHOL [Concomitant]
     Indication: CROHN^S DISEASE
     Dosage: 50MG DAILY
  4. METOPROLOL [Concomitant]
     Indication: HYPERTENSION
     Dosage: 25MG DAILY

REACTIONS (1)
  - Injection site pain [Recovered/Resolved]
